FAERS Safety Report 25852044 (Version 1)
Quarter: 2025Q3

REPORT INFORMATION
  Report Type: Report from Study
  Country: PR (occurrence: PR)
  Receive Date: 20250926
  Receipt Date: 20250926
  Transmission Date: 20251020
  Serious: Yes (Hospitalization)
  Sender: EISAI
  Company Number: PR-Eisai-EC-2025-197374

PATIENT
  Age: 74 Year
  Sex: Male
  Weight: 60 kg

DRUGS (7)
  1. LENVIMA [Suspect]
     Active Substance: LENVATINIB
     Indication: Hepatic cancer
     Route: 048
     Dates: start: 20250718, end: 2025
  2. LENVIMA [Suspect]
     Active Substance: LENVATINIB
     Route: 048
     Dates: start: 2025, end: 202509
  3. ZOLOFT [Concomitant]
     Active Substance: SERTRALINE HYDROCHLORIDE
  4. ELIQUIS [Concomitant]
     Active Substance: APIXABAN
  5. HYDROCHLOROTHIAZIDE\LOSARTAN POTASSIUM [Concomitant]
     Active Substance: HYDROCHLOROTHIAZIDE\LOSARTAN POTASSIUM
  6. METOPROLOL SUCCINATE [Concomitant]
     Active Substance: METOPROLOL SUCCINATE
  7. SKYRIZI [Concomitant]
     Active Substance: RISANKIZUMAB-RZAA

REACTIONS (7)
  - Decreased appetite [Not Recovered/Not Resolved]
  - Dehydration [Not Recovered/Not Resolved]
  - Confusional state [Not Recovered/Not Resolved]
  - Jaundice [Not Recovered/Not Resolved]
  - Diarrhoea [Not Recovered/Not Resolved]
  - Heart rate increased [Unknown]
  - Blood pressure increased [Unknown]

NARRATIVE: CASE EVENT DATE: 20250101
